FAERS Safety Report 13831027 (Version 3)
Quarter: 2019Q1

REPORT INFORMATION
  Report Type: Spontaneous
  Country: FR (occurrence: FR)
  Receive Date: 20170803
  Receipt Date: 20190219
  Transmission Date: 20190417
  Serious: Yes (Hospitalization, Disabling)
  Sender: FDA-Public Use
  Company Number: FR-SA-2017SA130508

PATIENT
  Age: 74 Year
  Sex: Female

DRUGS (2)
  1. LOVENOX [Suspect]
     Active Substance: ENOXAPARIN SODIUM
     Indication: PRODUCT USED FOR UNKNOWN INDICATION
     Dosage: 1 DF, QD 1 UNIT ON EVENING  (4000 UI 2 INJECTIONS)
     Route: 065
     Dates: start: 20150910, end: 20150911
  2. DUOPLAVIN [Concomitant]
     Active Substance: ASPIRIN\CLOPIDOGREL
     Indication: ISCHAEMIC STROKE
     Dosage: UNK
     Dates: start: 2007

REACTIONS (13)
  - Insomnia [Unknown]
  - Unevaluable event [Unknown]
  - Gait disturbance [Not Recovered/Not Resolved]
  - Injection site swelling [Unknown]
  - Injection site induration [Unknown]
  - Pain in extremity [Unknown]
  - Neuralgia [Not Recovered/Not Resolved]
  - Swelling [Unknown]
  - Paraesthesia [Recovered/Resolved]
  - Injection site haematoma [Unknown]
  - Fat necrosis [Recovered/Resolved with Sequelae]
  - Incorrect route of product administration [Unknown]
  - Impaired driving ability [Unknown]

NARRATIVE: CASE EVENT DATE: 2015
